FAERS Safety Report 13966639 (Version 17)
Quarter: 2020Q4

REPORT INFORMATION
  Report Type: Report from Study
  Country: None (occurrence: NL)
  Receive Date: 20170914
  Receipt Date: 20201215
  Transmission Date: 20210113
  Serious: Yes (Hospitalization)
  Sender: FDA-Public Use
  Company Number: NL-ABBVIE-17K-114-2094899-00

PATIENT
  Age: 74 Year
  Sex: Male
  Weight: 75.4 kg

DRUGS (10)
  1. DUODOPA [Suspect]
     Active Substance: CARBIDOPA\LEVODOPA
     Dosage: MD: 11.0 ML, CD: 3.2 ML/HR, ED: 1.5 ML REMAINED AT 16 HOURS
     Route: 050
  2. DUODOPA [Suspect]
     Active Substance: CARBIDOPA\LEVODOPA
     Dosage: MD: 11.0, CD: 2.9, ED: 1.5
     Route: 050
     Dates: start: 2017, end: 2017
  3. DUODOPA [Suspect]
     Active Substance: CARBIDOPA\LEVODOPA
     Dosage: MD 11.0 CD 3.3 ED 1.5
     Route: 050
  4. DUODOPA [Suspect]
     Active Substance: CARBIDOPA\LEVODOPA
     Indication: PARKINSON^S DISEASE
     Dosage: MD: 11.0, CD: 2.7, ED: 1.2
     Route: 050
     Dates: start: 20170530, end: 2017
  5. DUODOPA [Suspect]
     Active Substance: CARBIDOPA\LEVODOPA
     Dosage: MD: 11.0, CD: 3.0, ED: 1.2
     Route: 050
     Dates: start: 2017
  6. DUODOPA [Suspect]
     Active Substance: CARBIDOPA\LEVODOPA
     Dosage: DOSAGE: MORNING DOSE 11.0 ML, CONTINUOUS DOSE FROM 3.1 TO 3.3 ML/HR, EXTRA DOSE 1.5 ML
     Route: 050
  7. DUODOPA [Suspect]
     Active Substance: CARBIDOPA\LEVODOPA
     Dosage: MD: 11.0 ML, CD: 3.1 ML/HR, ED: 1.5 ML?REMAINED AT 16 HR
     Route: 050
  8. LEVODOPA [Concomitant]
     Active Substance: LEVODOPA
     Indication: PARKINSON^S DISEASE
  9. MIRTAZAPINE. [Concomitant]
     Active Substance: MIRTAZAPINE
     Indication: SLEEP DISORDER
     Route: 065
  10. MACROGOL [Concomitant]
     Active Substance: POLYETHYLENE GLYCOLS
     Indication: ABNORMAL FAECES

REACTIONS (40)
  - Balance disorder [Not Recovered/Not Resolved]
  - Fatigue [Not Recovered/Not Resolved]
  - Bradykinesia [Unknown]
  - Mobility decreased [Not Recovered/Not Resolved]
  - Constipation [Recovered/Resolved]
  - Gastrointestinal disorder [Recovered/Resolved]
  - Aphasia [Not Recovered/Not Resolved]
  - Wrong technique in device usage process [Unknown]
  - Feeling abnormal [Recovered/Resolved]
  - Weight increased [Recovered/Resolved]
  - Bradykinesia [Recovered/Resolved]
  - Therapeutic product effect incomplete [Not Recovered/Not Resolved]
  - Negative thoughts [Not Recovered/Not Resolved]
  - Sluggishness [Not Recovered/Not Resolved]
  - Sleep disorder [Recovered/Resolved]
  - On and off phenomenon [Not Recovered/Not Resolved]
  - Retching [Not Recovered/Not Resolved]
  - Fibroma [Recovered/Resolved]
  - Mental impairment [Not Recovered/Not Resolved]
  - Tension [Not Recovered/Not Resolved]
  - Speech disorder [Not Recovered/Not Resolved]
  - Somnolence [Not Recovered/Not Resolved]
  - Drug ineffective [Recovered/Resolved]
  - Volvulus [Not Recovered/Not Resolved]
  - Malaise [Not Recovered/Not Resolved]
  - Hernia [Recovering/Resolving]
  - Stoma site erythema [Recovered/Resolved]
  - Dyskinesia [Unknown]
  - Affective disorder [Unknown]
  - Dyskinesia [Not Recovered/Not Resolved]
  - Stoma site erythema [Recovered/Resolved]
  - Hypokinesia [Recovering/Resolving]
  - Weight decreased [Not Recovered/Not Resolved]
  - Volvulus [Recovered/Resolved]
  - Nocturia [Not Recovered/Not Resolved]
  - Dyskinesia [Recovered/Resolved]
  - Device difficult to use [Unknown]
  - Decreased interest [Not Recovered/Not Resolved]
  - Poor quality sleep [Recovered/Resolved]
  - Fibroma [Not Recovered/Not Resolved]

NARRATIVE: CASE EVENT DATE: 2017
